FAERS Safety Report 18870575 (Version 3)
Quarter: 2022Q2

REPORT INFORMATION
  Report Type: Report from Study
  Country: US (occurrence: US)
  Receive Date: 20210209
  Receipt Date: 20220627
  Transmission Date: 20220720
  Serious: Yes (Life-Threatening, Hospitalization)
  Sender: FDA-Public Use
  Company Number: US-JNJFOC-20210215338

PATIENT
  Age: 18 Year
  Sex: Female
  Weight: 65.2 kg

DRUGS (14)
  1. INFLIXIMAB [Suspect]
     Active Substance: INFLIXIMAB
     Indication: Inflammatory bowel disease
     Route: 041
     Dates: start: 20101208, end: 20111201
  2. METHOTREXATE [Concomitant]
     Active Substance: METHOTREXATE
  3. STELARA [Concomitant]
     Active Substance: USTEKINUMAB
  4. SPRINTEC [Concomitant]
     Active Substance: ETHINYL ESTRADIOL\NORGESTIMATE
  5. RIBOFLAVIN BUTYRATE [Concomitant]
  6. NORGESTIMATE AND ETHINYL ESTRADIOL [Concomitant]
     Active Substance: ETHINYL ESTRADIOL\NORGESTIMATE
     Dosage: 0.25MG/35MCG
  7. LOPERAMIDE [Concomitant]
     Active Substance: LOPERAMIDE
  8. FERROUS SULFATE [Concomitant]
     Active Substance: FERROUS SULFATE
  9. SERTRALINE [Concomitant]
     Active Substance: SERTRALINE HYDROCHLORIDE
  10. SUMATRIPTAN SUCCINATE [Concomitant]
     Active Substance: SUMATRIPTAN SUCCINATE
  11. VITAMIN B12 [Concomitant]
     Active Substance: CYANOCOBALAMIN
     Dosage: 1000MCG
  12. EXCEDRIN MIGRAINE [Concomitant]
     Active Substance: ACETAMINOPHEN\ASPIRIN\CAFFEINE
  13. IRON [Concomitant]
     Active Substance: IRON
     Dosage: IRON 100 PLUS ORAL MULTIVITAMIN
  14. FOLIC ACID [Concomitant]
     Active Substance: FOLIC ACID

REACTIONS (1)
  - Carcinoid tumour [Recovered/Resolved with Sequelae]

NARRATIVE: CASE EVENT DATE: 20201215
